FAERS Safety Report 19701347 (Version 1)
Quarter: 2021Q3

REPORT INFORMATION
  Report Type: Spontaneous
  Country: CN (occurrence: CN)
  Receive Date: 20210814
  Receipt Date: 20210814
  Transmission Date: 20211014
  Serious: Yes (Other)
  Sender: FDA-Public Use
  Company Number: NVSC2021CN181936

PATIENT
  Age: 53 Year
  Sex: Male

DRUGS (2)
  1. TEGRETOL [Suspect]
     Active Substance: CARBAMAZEPINE
     Indication: SUBARACHNOID HAEMORRHAGE
  2. TEGRETOL [Suspect]
     Active Substance: CARBAMAZEPINE
     Indication: ANEURYSM RUPTURED
     Dosage: 200 MG, BID
     Route: 048
     Dates: start: 20210722, end: 20210805

REACTIONS (1)
  - Rash [Recovering/Resolving]

NARRATIVE: CASE EVENT DATE: 20210804
